FAERS Safety Report 24110624 (Version 1)
Quarter: 2024Q3

REPORT INFORMATION
  Report Type: Spontaneous
  Country: JP (occurrence: JP)
  Receive Date: 20240718
  Receipt Date: 20240718
  Transmission Date: 20241016
  Serious: Yes (Other)
  Sender: BOEHRINGER INGELHEIM
  Company Number: JP-BoehringerIngelheim-2024-BI-040148

PATIENT

DRUGS (1)
  1. GILOTRIF [Suspect]
     Active Substance: AFATINIB
     Indication: Product used for unknown indication

REACTIONS (4)
  - Metastases to spinal cord [Unknown]
  - Neoplasm malignant [Unknown]
  - Drug ineffective [Unknown]
  - Back pain [Unknown]
